FAERS Safety Report 25228783 (Version 2)
Quarter: 2025Q2

REPORT INFORMATION
  Report Type: Spontaneous
  Country: US (occurrence: US)
  Receive Date: 20250423
  Receipt Date: 20250506
  Transmission Date: 20250717
  Serious: No
  Sender: BECTON DICKINSON
  Company Number: US-BECTON DICKINSON-US-BD-25-000203

PATIENT
  Sex: Male

DRUGS (1)
  1. CHLORAPREP WITH TINT [Suspect]
     Active Substance: CHLORHEXIDINE GLUCONATE\ISOPROPYL ALCOHOL
     Indication: Product used for unknown indication
     Route: 065

REACTIONS (3)
  - Injury associated with device [Unknown]
  - Device defective [Unknown]
  - Occupational exposure to product [Unknown]

NARRATIVE: CASE EVENT DATE: 20250209
